FAERS Safety Report 6598636-5 (Version None)
Quarter: 2010Q1

REPORT INFORMATION
  Report Type: 
  Country: None (occurrence: None)
  Receive Date: 20100219
  Receipt Date: 20100219
  Transmission Date: 20100710
  Serious: No
  Sender: FDA-Public Use
  Company Number: None

PATIENT
  Age: 53 Year
  Sex: Female
  Weight: 102.0593 kg

DRUGS (2)
  1. LEVAQUIN [Suspect]
     Indication: CYSTITIS
     Dosage: 1 2 BUCCAL
     Route: 002
     Dates: start: 19990101, end: 20080101
  2. LEVAQUIN [Suspect]
     Indication: INFECTION PROPHYLAXIS
     Dosage: 1 2 BUCCAL
     Route: 002
     Dates: start: 19990101, end: 20080101

REACTIONS (2)
  - ABASIA [None]
  - PAIN IN EXTREMITY [None]
